FAERS Safety Report 10065915 (Version 2)
Quarter: 2014Q2

REPORT INFORMATION
  Report Type: Spontaneous
  Country: US (occurrence: US)
  Receive Date: 20140408
  Receipt Date: 20140521
  Transmission Date: 20141212
  Serious: No
  Sender: FDA-Public Use
  Company Number: US-PFIZER INC-2014096990

PATIENT
  Sex: Male

DRUGS (1)
  1. DEPO MEDROL [Suspect]
     Dosage: UNK
     Route: 008
     Dates: start: 20140304

REACTIONS (3)
  - Incorrect route of drug administration [Unknown]
  - Pain [Unknown]
  - Pain in extremity [Unknown]
